FAERS Safety Report 8790581 (Version 1)
Quarter: 2012Q4

REPORT INFORMATION
  Report Type: Spontaneous
  Country: US (occurrence: None)
  Receive Date: 20120912
  Receipt Date: 20120912
  Transmission Date: 20130627
  Serious: Yes (Other)
  Sender: FDA-Public Use
  Company Number: None

PATIENT
  Age: 63 Year
  Sex: Female
  Weight: 58.97 kg

DRUGS (1)
  1. PICATO [Suspect]
     Indication: PIMPLE
     Dates: start: 20120819

REACTIONS (5)
  - Pain [None]
  - Burning sensation [None]
  - Pruritus [None]
  - Blister [None]
  - Skin ulcer [None]
